FAERS Safety Report 4520164-9 (Version None)
Quarter: 2004Q4

REPORT INFORMATION
  Report Type: 
  Country: None (occurrence: None)
  Receive Date: 20041029
  Receipt Date: 20040818
  Transmission Date: 20050328
  Serious: No
  Sender: FDA-Public Use
  Company Number: 2004-119602-NL

PATIENT
  Age: 40 Year
  Sex: Female

DRUGS (7)
  1. NUVARING [Suspect]
     Indication: CONTRACEPTION
     Dosage: DF DAILY, VAGINAL
     Route: 067
     Dates: start: 20040401, end: 20040701
  2. MULTI-VITAMINS [Concomitant]
  3. VITAMIN C [Concomitant]
  4. VITAMIN E [Concomitant]
  5. IRON [Concomitant]
  6. FISH OIL (OMEGA OILS) [Concomitant]
  7. ACIDOPHILUS [Concomitant]

REACTIONS (7)
  - CARDIOVASCULAR DISORDER [None]
  - CHEST DISCOMFORT [None]
  - DIZZINESS [None]
  - FATIGUE [None]
  - HEART RATE INCREASED [None]
  - HEART RATE IRREGULAR [None]
  - PARAESTHESIA [None]
